FAERS Safety Report 17130117 (Version 1)
Quarter: 2019Q4

REPORT INFORMATION
  Report Type: Spontaneous
  Country: CN (occurrence: CN)
  Receive Date: 20191209
  Receipt Date: 20191209
  Transmission Date: 20200122
  Serious: Yes (Hospitalization)
  Sender: FDA-Public Use
  Company Number: CN-PFIZER INC-2019529230

PATIENT
  Age: 51 Year
  Sex: Male
  Weight: 80 kg

DRUGS (1)
  1. LIPITOR [Suspect]
     Active Substance: ATORVASTATIN CALCIUM
     Indication: LIPIDS ABNORMAL
     Dosage: 10 MG, 1X/DAY
     Route: 048
     Dates: start: 20190901, end: 20190925

REACTIONS (4)
  - Jaundice [Recovering/Resolving]
  - Blood lactate dehydrogenase increased [Unknown]
  - Transaminases increased [Unknown]
  - Blood creatine phosphokinase increased [Unknown]

NARRATIVE: CASE EVENT DATE: 20190925
